FAERS Safety Report 8883981 (Version 2)
Quarter: 2012Q4

REPORT INFORMATION
  Report Type: 
  Country: CO (occurrence: CO)
  Receive Date: 20121102
  Receipt Date: 20121108
  Transmission Date: 20130627
  Serious: Yes (Hospitalization, Other)
  Sender: FDA-Public Use
  Company Number: CO-ELI_LILLY_AND_COMPANY-CO201210007443

PATIENT
  Age: 76 Year
  Sex: Female

DRUGS (4)
  1. FORTEO [Suspect]
     Indication: OSTEOPOROSIS
     Dosage: 20 ug, qd
     Route: 058
     Dates: start: 20120810
  2. CALCIUM +VIT D [Concomitant]
     Indication: SUPPLEMENTATION THERAPY
     Dosage: UNK, unknown
     Route: 065
  3. OMEPRAZOL [Concomitant]
     Dosage: UNK, unknown
     Route: 065
  4. LOSARTAN [Concomitant]
     Dosage: UNK, unknown
     Route: 065

REACTIONS (5)
  - Abdominal pain upper [Unknown]
  - Abdominal mass [Unknown]
  - Cholecystitis [Unknown]
  - Abdominal pain [Recovering/Resolving]
  - Bone pain [Recovering/Resolving]
